FAERS Safety Report 9507178 (Version 1)
Quarter: 2013Q3

REPORT INFORMATION
  Report Type: Spontaneous
  Country: US (occurrence: None)
  Receive Date: 20130904
  Receipt Date: 20130904
  Transmission Date: 20140515
  Serious: Yes (Other)
  Sender: FDA-Public Use
  Company Number: 2013-002723

PATIENT
  Age: 59 Year
  Sex: Female

DRUGS (2)
  1. ATELVIA (RISEDRONATE SODIUM EDETATE DISODIUM) TABLET, 35MG [Suspect]
     Route: 048
     Dates: start: 201208
  2. BENICAR (OLMESARTAN MEDOXOMIL) [Concomitant]

REACTIONS (4)
  - Cataract [None]
  - Tooth disorder [None]
  - Tooth demineralisation [None]
  - Device failure [None]
